FAERS Safety Report 13312976 (Version 3)
Quarter: 2017Q3

REPORT INFORMATION
  Report Type: Spontaneous
  Country: IL (occurrence: IL)
  Receive Date: 20170309
  Receipt Date: 20170711
  Transmission Date: 20171127
  Serious: Yes (Other)
  Sender: FDA-Public Use
  Company Number: IL-NOVOPROD-532593

PATIENT
  Age: 55 Year
  Sex: Male

DRUGS (3)
  1. SAXENDA [Suspect]
     Active Substance: LIRAGLUTIDE
     Dosage: 0.6 MG, QD
     Route: 058
  2. SAXENDA [Suspect]
     Active Substance: LIRAGLUTIDE
     Dosage: 1.2 MG, QD
     Route: 058
  3. SAXENDA [Suspect]
     Active Substance: LIRAGLUTIDE
     Indication: PRODUCT USED FOR UNKNOWN INDICATION
     Dosage: 0.3 MG, QD (FOR THREE DAYS)
     Route: 058
     Dates: start: 20170214

REACTIONS (8)
  - Headache [Recovered/Resolved]
  - Eye haemorrhage [Unknown]
  - Asthenia [Unknown]
  - Headache [Unknown]
  - Flatulence [Unknown]
  - Pyrexia [Unknown]
  - Eructation [Unknown]
  - Constipation [Unknown]

NARRATIVE: CASE EVENT DATE: 20170217
